FAERS Safety Report 19395416 (Version 1)
Quarter: 2021Q2

REPORT INFORMATION
  Report Type: Spontaneous
  Country: US (occurrence: US)
  Receive Date: 20210609
  Receipt Date: 20210609
  Transmission Date: 20210717
  Serious: Yes (Other)
  Sender: FDA-Public Use
  Company Number: US-BAYER-2021-155181

PATIENT
  Sex: Female

DRUGS (1)
  1. LEVONORGESTREL IUS [UNKNOWN] [Suspect]
     Active Substance: LEVONORGESTREL
     Dosage: UNSPECIFIED AMOUNT OF ?G PER DAY CONTINUOUSLY
     Route: 015
     Dates: end: 20210315

REACTIONS (1)
  - Embedded device [None]
